FAERS Safety Report 4522664-4 (Version None)
Quarter: 2004Q4

REPORT INFORMATION
  Report Type: 
  Country: None (occurrence: None)
  Receive Date: 20041207
  Receipt Date: 20041122
  Transmission Date: 20050328
  Serious: Yes (Hospitalization)
  Sender: FDA-Public Use
  Company Number: 2004CG02342

PATIENT
  Age: 90 Year
  Sex: Female

DRUGS (6)
  1. PULMICORT [Suspect]
     Dates: start: 20040213, end: 20040214
  2. AUGMENTIN '125' [Suspect]
     Dosage: 1 G BID PO
     Route: 048
     Dates: start: 20040213, end: 20040214
  3. ROCEPHIN [Suspect]
     Dosage: 1 G QD
     Dates: start: 20040215, end: 20040217
  4. NOLVADEX [Concomitant]
  5. LASILIX [Concomitant]
  6. SOLUPRED [Concomitant]

REACTIONS (2)
  - COUGH [None]
  - TOXIC SKIN ERUPTION [None]
